FAERS Safety Report 5061064-8 (Version None)
Quarter: 2006Q3

REPORT INFORMATION
  Report Type: 
  Country: None (occurrence: None)
  Receive Date: 20060725
  Receipt Date: 20060712
  Transmission Date: 20061208
  Serious: Yes (Hospitalization)
  Sender: FDA-Public Use
  Company Number: DE-ROCHE-454876

PATIENT
  Age: 26 Year
  Sex: Male

DRUGS (41)
  1. ZENAPAX [Suspect]
     Route: 042
     Dates: start: 20041107, end: 20041107
  2. ZENAPAX [Suspect]
     Route: 042
     Dates: start: 20041114, end: 20041114
  3. MYCOPHENOLATE MOFETIL [Suspect]
     Route: 042
     Dates: start: 20041107, end: 20041107
  4. MYCOPHENOLATE MOFETIL [Suspect]
     Route: 042
     Dates: start: 20041108, end: 20041111
  5. MYCOPHENOLATE MOFETIL [Suspect]
     Route: 048
     Dates: start: 20041112
  6. TACROLIMUS [Suspect]
     Dosage: DOSE ADJUSTED TO REACH PRE-DEFINED TARGET LEVELS. 8.5 MG: 4.5 MG + 4 MG
     Route: 048
     Dates: start: 20041112
  7. METHYLPREDNISOLONE [Suspect]
     Dosage: DOSE TAPERED ACCORDING TO LOCAL PROTOCOL.
     Route: 065
     Dates: start: 20041107, end: 20041215
  8. METHYLPREDNISOLONE [Suspect]
     Dosage: TREATMENT OF REJECTION
     Route: 065
     Dates: start: 20041216, end: 20041218
  9. METHYLPREDNISOLONE [Suspect]
     Dosage: DOSE TAPERED BACK TO MAINTENANCE AFTER TREATMENT OF REJECTION
     Route: 065
     Dates: start: 20041219, end: 20050317
  10. METHYLPREDNISOLONE [Suspect]
     Dosage: DOSE TAPERED ACCORDING TO LOCAL PROTOCOL.
     Route: 065
     Dates: start: 20050318
  11. CLONT [Concomitant]
     Indication: INFECTION PROPHYLAXIS
     Dates: start: 20041108, end: 20041110
  12. ZINACEF [Concomitant]
     Indication: INFECTION PROPHYLAXIS
     Dates: start: 20041108, end: 20041110
  13. TURIXIN [Concomitant]
     Indication: INFECTION PROPHYLAXIS
     Dates: start: 20041108, end: 20041109
  14. AMPHO-MORONAL [Concomitant]
     Indication: INFECTION PROPHYLAXIS
     Dosage: STOPPED 8 NOV 04, RESTARTED 15 DEC 04.
     Dates: start: 20041108, end: 20050317
  15. HEXORAL [Concomitant]
     Indication: INFECTION PROPHYLAXIS
     Dates: start: 20041108, end: 20041108
  16. SEMPERA [Concomitant]
     Indication: INFECTION PROPHYLAXIS
     Dates: start: 20041108, end: 20041113
  17. LASIX [Concomitant]
     Dosage: INDICATION REPORTED AS SUPPORT OF RENAL EXCRETION
     Dates: start: 20041107, end: 20041107
  18. CATAPRES [Concomitant]
     Indication: PROPHYLAXIS
     Dates: start: 20041108, end: 20041108
  19. DIPIDOLOR [Concomitant]
     Indication: PAIN PROPHYLAXIS
     Dosage: STOPPED 9 NOV 04, RESTARTED 12 NOV 04.
     Dates: start: 20041107, end: 20041112
  20. DOLANTIN [Concomitant]
     Indication: PAIN PROPHYLAXIS
     Dates: start: 20041107, end: 20041107
  21. LOPRESSOR [Concomitant]
     Indication: PROPHYLAXIS
     Dates: start: 20041107, end: 20041107
  22. ACETAMINOPHEN [Concomitant]
     Indication: PAIN PROPHYLAXIS
     Dates: start: 20041107, end: 20041110
  23. 1 CONCOMITANT DRUG [Concomitant]
     Indication: INFECTION PROPHYLAXIS
     Dosage: DRUG NAME REPORTED AS SDD
     Dates: start: 20041108, end: 20041110
  24. KEPINOL [Concomitant]
     Indication: INFECTION PROPHYLAXIS
     Dates: start: 20041108, end: 20050317
  25. DISOPRIVAN [Concomitant]
     Dosage: INDICATION REPORTED AS ^SEDATION AFTER NARKOSIS^
     Dates: start: 20041107, end: 20041107
  26. INSULIN [Concomitant]
     Indication: PROPHYLAXIS
     Dates: start: 20041107, end: 20041108
  27. CANDIO-HERMAL [Concomitant]
     Indication: INFECTION PROPHYLAXIS
     Dates: start: 20041108, end: 20041123
  28. NOVALGIN [Concomitant]
     Indication: PAIN PROPHYLAXIS
     Dosage: STOPPED 8 NOV 04, RESTARTED 11 NOV 04
     Dates: start: 20041108, end: 20041111
  29. URSO FALK [Concomitant]
     Indication: PROPHYLAXIS
     Dates: start: 20041109, end: 20041115
  30. PANTOZOL [Concomitant]
     Indication: PROPHYLAXIS
     Dates: start: 20041109, end: 20041214
  31. ACETYLCYSTEINE [Concomitant]
     Indication: PROPHYLAXIS
     Dates: start: 20041109, end: 20041115
  32. POTASSIUM CHLORIDE [Concomitant]
     Dosage: INDICATION REPORTED AS 'SUBSTITUTION OF POTASSIUM'
     Dates: start: 20041110, end: 20041110
  33. TAVOR [Concomitant]
     Indication: SLEEP DISORDER THERAPY
     Dosage: STOPPED 12 NOV, RESTARTED 14 NOV 04
     Dates: start: 20041112, end: 20041114
  34. CIPROBAY [Concomitant]
     Indication: INFECTION PROPHYLAXIS
     Dates: start: 20041111, end: 20041117
  35. CLEXANE [Concomitant]
     Indication: THROMBOSIS PROPHYLAXIS
     Dates: start: 20041110, end: 20041122
  36. DIMENHYDRINATE [Concomitant]
     Indication: VOMITING
     Dates: start: 20041113, end: 20041114
  37. NEXIUM [Concomitant]
     Indication: PROPHYLAXIS
     Dates: start: 20041215
  38. VALCYTE [Concomitant]
     Dates: start: 20041217, end: 20041220
  39. VALDISPERT [Concomitant]
     Indication: SLEEP DISORDER THERAPY
     Dosage: STOPPED 19 DEC 04, RESTARTED 23 MAR 05.
     Dates: start: 20041217, end: 20050324
  40. CLAVERSAL [Concomitant]
     Indication: COLITIS ULCERATIVE
     Dates: start: 20050323, end: 20050329
  41. IDEOS [Concomitant]
     Dosage: INDICATION REPORTED AS 'SUBSTITUTION OF CALCIUM'
     Dates: start: 20050323, end: 20050512

REACTIONS (2)
  - LIVER ABSCESS [None]
  - LUNG DISORDER [None]
